FAERS Safety Report 8359942-7 (Version None)
Quarter: 2012Q2

REPORT INFORMATION
  Report Type: 
  Country: None (occurrence: None)
  Receive Date: 20120515
  Receipt Date: 20120510
  Transmission Date: 20120825
  Serious: No
  Sender: FDA-Public Use
  Company Number: PHHY2012BR019150

PATIENT
  Sex: Male
  Weight: 96 kg

DRUGS (1)
  1. EXELON [Suspect]
     Indication: HEADACHE
     Dosage: 9.5 MG/24 HS
     Route: 062
     Dates: end: 20120301

REACTIONS (4)
  - BLISTER [None]
  - APPLICATION SITE HYPERSENSITIVITY [None]
  - APPLICATION SITE PRURITUS [None]
  - APPLICATION SITE ERYTHEMA [None]
